FAERS Safety Report 8228970-4 (Version None)
Quarter: 2012Q1

REPORT INFORMATION
  Report Type: 
  Country: None (occurrence: None)
  Receive Date: 20120322
  Receipt Date: 20120319
  Transmission Date: 20120608
  Serious: Yes (Hospitalization, Other)
  Sender: FDA-Public Use
  Company Number: US-BAYER-2011-107537

PATIENT
  Age: 16 Year
  Sex: Female
  Weight: 63.492 kg

DRUGS (10)
  1. BACTRIM DS [Concomitant]
     Indication: ACNE
     Dosage: 1 DF, BID
     Dates: start: 20080328, end: 20080430
  2. BENZACLIN [Concomitant]
     Indication: ACNE
     Route: 061
  3. ACCUTANE [Concomitant]
     Indication: ACNE
  4. BACTRIM DS [Concomitant]
     Dosage: UNK
     Dates: start: 20081117
  5. PROAIR HFA [Concomitant]
     Indication: ASTHMA
     Dosage: UNK
     Dates: start: 20080101, end: 20110101
  6. TETRACYCLINE [Concomitant]
     Indication: ACNE
     Dosage: UNK
     Route: 048
     Dates: start: 20070101
  7. MINOCYCLINE HCL [Concomitant]
     Indication: ACNE
     Dosage: UNK
     Dates: start: 20070101
  8. YAZ [Suspect]
     Indication: ACNE
     Dosage: UNK
     Dates: start: 20080301, end: 20081201
  9. AMNESTEEM [Concomitant]
     Indication: ACNE
     Dosage: 40 MG, UNK
     Dates: start: 20080430, end: 20081001
  10. TRETINOIN [Concomitant]
     Indication: ACNE
     Route: 061

REACTIONS (7)
  - CARDIO-RESPIRATORY DISTRESS [None]
  - LOSS OF CONSCIOUSNESS [None]
  - SYNCOPE [None]
  - EMOTIONAL DISTRESS [None]
  - PAIN [None]
  - RESPIRATORY ARREST [None]
  - INJURY [None]
